FAERS Safety Report 16919944 (Version 7)
Quarter: 2020Q2

REPORT INFORMATION
  Report Type: Spontaneous
  Country: US (occurrence: US)
  Receive Date: 20191015
  Receipt Date: 20200623
  Transmission Date: 20200713
  Serious: Yes (Hospitalization)
  Sender: FDA-Public Use
  Company Number: US-ACTELION-A-NJ2019-196862

PATIENT
  Sex: Female
  Weight: 44.44 kg

DRUGS (2)
  1. OPSUMIT [Suspect]
     Active Substance: MACITENTAN
     Indication: PULMONARY ARTERIAL HYPERTENSION
     Dosage: 10 MG, QD
     Route: 048
  2. SILDENAFIL CITRATE. [Concomitant]
     Active Substance: SILDENAFIL CITRATE

REACTIONS (12)
  - Fluid retention [Unknown]
  - Pyrexia [Unknown]
  - Lung disorder [Unknown]
  - Cardiac disorder [Unknown]
  - Contusion [Unknown]
  - Toothache [Unknown]
  - Pain in extremity [Unknown]
  - Presyncope [Unknown]
  - Oropharyngeal pain [Unknown]
  - Peripheral swelling [Unknown]
  - Cough [Not Recovered/Not Resolved]
  - Swelling face [Unknown]

NARRATIVE: CASE EVENT DATE: 2020
